FAERS Safety Report 15122940 (Version 3)
Quarter: 2019Q1

REPORT INFORMATION
  Report Type: Report from Study
  Country: US (occurrence: US)
  Receive Date: 20180709
  Receipt Date: 20190117
  Transmission Date: 20190417
  Serious: Yes (Hospitalization)
  Sender: FDA-Public Use
  Company Number: US-ACTELION-A-US2018-174944

PATIENT
  Age: 83 Year
  Sex: Male
  Weight: 103.4 kg

DRUGS (2)
  1. UPTRAVI [Suspect]
     Active Substance: SELEXIPAG
     Dosage: 200 MCG, BID
     Route: 048
  2. UPTRAVI [Suspect]
     Active Substance: SELEXIPAG
     Indication: PULMONARY ARTERIAL HYPERTENSION
     Dosage: 400 MCG, BID
     Route: 048

REACTIONS (6)
  - Renal failure [Unknown]
  - Lower limb fracture [Unknown]
  - Fall [Unknown]
  - Cardiac arrest [Unknown]
  - Arthralgia [Unknown]
  - Dehydration [Unknown]
